FAERS Safety Report 6572284-5 (Version None)
Quarter: 2010Q1

REPORT INFORMATION
  Report Type: 
  Country: None (occurrence: None)
  Receive Date: 20100205
  Receipt Date: 20100128
  Transmission Date: 20100710
  Serious: Yes (Other)
  Sender: FDA-Public Use
  Company Number: US-SANOFI-AVENTIS-2009SA003036

PATIENT
  Age: 74 Year
  Sex: Female
  Weight: 56.8 kg

DRUGS (12)
  1. MULTAQ [Suspect]
     Indication: ATRIAL FIBRILLATION
     Route: 048
     Dates: start: 20090901
  2. MULTAQ [Suspect]
     Route: 048
     Dates: end: 20091201
  3. MULTAQ [Suspect]
     Route: 048
     Dates: start: 20091201, end: 20091201
  4. MULTAQ [Suspect]
     Route: 048
     Dates: start: 20091201
  5. DARVON [Concomitant]
     Indication: PAIN
  6. XALATAN [Concomitant]
     Indication: GLAUCOMA
     Route: 031
  7. LEXAPRO [Concomitant]
     Indication: ANXIETY
     Route: 065
  8. SYNTHROID [Concomitant]
     Indication: THYROIDECTOMY
     Route: 065
  9. DIOVAN HCT [Concomitant]
     Route: 065
  10. DIOVAN HCT [Concomitant]
     Dosage: 2 - 80MG TABS EVERY MORNING
     Route: 065
  11. ATIVAN [Concomitant]
     Indication: ANXIETY
     Route: 065
  12. NORVASC [Concomitant]
     Dates: end: 20091201

REACTIONS (17)
  - ANXIETY [None]
  - ARTHRALGIA [None]
  - ASTHENIA [None]
  - ATRIAL FIBRILLATION [None]
  - BLOOD PRESSURE INCREASED [None]
  - DIARRHOEA [None]
  - DIZZINESS [None]
  - DRUG INTOLERANCE [None]
  - ELECTROLYTE IMBALANCE [None]
  - FATIGUE [None]
  - INFLUENZA LIKE ILLNESS [None]
  - INTENTIONAL DRUG MISUSE [None]
  - MUSCLE SPASMS [None]
  - NAUSEA [None]
  - PAIN [None]
  - RHINORRHOEA [None]
  - TACHYCARDIA [None]
